FAERS Safety Report 10890813 (Version 1)
Quarter: 2015Q1

REPORT INFORMATION
  Report Type: Spontaneous
  Country: IT (occurrence: IT)
  Receive Date: 20150305
  Receipt Date: 20150305
  Transmission Date: 20150721
  Serious: Yes (Hospitalization)
  Sender: FDA-Public Use
  Company Number: IT-TEVA-544307ACC

PATIENT
  Age: 47 Year
  Sex: Female

DRUGS (2)
  1. DEPAKIN CHRONO - 500 MG COMPRESSE A RILASCIO PROLUNGATO - SANOFI S.P.A [Suspect]
     Active Substance: VALPROATE SODIUM
     Indication: PRODUCT USED FOR UNKNOWN INDICATION
     Dosage: 15000 MG TOTAL
     Route: 048
     Dates: start: 20140924, end: 20140924
  2. CARBOLITHIUM - 300 MG CAPSULE RIGIDE - TEVA ITALIA S.R.L. [Suspect]
     Active Substance: LITHIUM CARBONATE
     Indication: PRODUCT USED FOR UNKNOWN INDICATION
     Dosage: 5400 MG TOTAL
     Route: 048
     Dates: start: 20140924, end: 20140924

REACTIONS (3)
  - Drug abuse [Unknown]
  - Abdominal pain [Recovering/Resolving]
  - Nausea [Recovering/Resolving]

NARRATIVE: CASE EVENT DATE: 20140924
